FAERS Safety Report 6538067-7 (Version None)
Quarter: 2010Q1

REPORT INFORMATION
  Report Type: 
  Country: None (occurrence: None)
  Receive Date: 20100111
  Receipt Date: 20091229
  Transmission Date: 20100710
  Serious: Yes (Hospitalization, Other)
  Sender: FDA-Public Use
  Company Number: THYM-1000720

PATIENT
  Age: 50 Year
  Sex: Male

DRUGS (5)
  1. THYMOGLOBULIN [Suspect]
     Indication: PROPHYLAXIS AGAINST TRANSPLANT REJECTION
     Dosage: 75 MG, INTRAVENOUS
     Route: 042
     Dates: start: 20080331, end: 20080405
  2. THYMOGLOBULIN [Suspect]
  3. TACROLIMUS [Concomitant]
  4. METHYLPREDNISOLONE [Concomitant]
  5. MYCOPHENOLATE SODIUM (MYCOPHENOLATE SODIUM) [Concomitant]

REACTIONS (3)
  - BLOOD CREATINE INCREASED [None]
  - GRAFT DYSFUNCTION [None]
  - THROMBOTIC MICROANGIOPATHY [None]
